FAERS Safety Report 7515844-7 (Version None)
Quarter: 2011Q2

REPORT INFORMATION
  Report Type: 
  Country: None (occurrence: None)
  Receive Date: 20110601
  Receipt Date: 20110526
  Transmission Date: 20111010
  Serious: No
  Sender: FDA-Public Use
  Company Number: US-PFIZER INC-2011114988

PATIENT
  Sex: Female
  Weight: 65.76 kg

DRUGS (4)
  1. PRILOSEC [Concomitant]
     Indication: DYSPEPSIA
     Dosage: UNK
  2. ADVIL LIQUI-GELS [Suspect]
     Indication: JOINT SWELLING
     Dosage: 800 MG, UNK
     Route: 048
     Dates: start: 20110210, end: 20110526
  3. MULTI-VITAMINS [Concomitant]
     Dosage: UNK
  4. CALCIUM [Concomitant]
     Indication: BLOOD CALCIUM DECREASED
     Dosage: UNK

REACTIONS (4)
  - OEDEMA PERIPHERAL [None]
  - CONTUSION [None]
  - ERYTHEMA [None]
  - PAIN [None]
